FAERS Safety Report 6167144-8 (Version None)
Quarter: 2009Q2

REPORT INFORMATION
  Report Type: 
  Country: None (occurrence: None)
  Receive Date: 20090424
  Receipt Date: 20090409
  Transmission Date: 20091009
  Serious: Yes (Other)
  Sender: FDA-Public Use
  Company Number: US-MERCK-0904USA03221

PATIENT
  Sex: Female

DRUGS (1)
  1. CORTONE [Suspect]
     Route: 065

REACTIONS (3)
  - HEMIPARESIS [None]
  - HYPOAESTHESIA [None]
  - MUSCULOSKELETAL PAIN [None]
